FAERS Safety Report 23104806 (Version 3)
Quarter: 2023Q4

REPORT INFORMATION
  Report Type: Report from Study
  Country: CA (occurrence: CA)
  Receive Date: 20231025
  Receipt Date: 20231027
  Transmission Date: 20240110
  Serious: Yes (Other)
  Sender: FDA-Public Use
  Company Number: CA-HLS-202302387

PATIENT
  Age: 26 Year
  Sex: Male

DRUGS (4)
  1. CLOZARIL [Suspect]
     Active Substance: CLOZAPINE
     Indication: Product used for unknown indication
     Route: 048
     Dates: start: 20230920, end: 20231012
  2. CLOZARIL [Suspect]
     Active Substance: CLOZAPINE
     Indication: Product used for unknown indication
     Dosage: RESTART ON 13 OCTOBER (100 MG)
     Route: 065
  3. NICOTINE TRANSDERMAL SYSTEM [Concomitant]
     Active Substance: NICOTINE
     Indication: Product used for unknown indication
     Dosage: 7 MG
     Route: 065
  4. BISOPROLOL [Concomitant]
     Active Substance: BISOPROLOL\BISOPROLOL FUMARATE
     Indication: Product used for unknown indication
     Dosage: 2.5 MG
     Route: 065
     Dates: start: 20231011

REACTIONS (12)
  - Lymphocyte count increased [Unknown]
  - Lymphocyte count increased [Recovered/Resolved]
  - Neutrophil count increased [Unknown]
  - C-reactive protein increased [Recovering/Resolving]
  - Red blood cell sedimentation rate increased [Unknown]
  - Immature granulocyte count increased [Unknown]
  - Mean cell volume decreased [Unknown]
  - Electrocardiogram ST-T segment abnormal [Unknown]
  - Red blood cell count increased [Unknown]
  - Tachycardia [Recovering/Resolving]
  - White blood cell count increased [Recovered/Resolved]
  - White blood cell count increased [Unknown]

NARRATIVE: CASE EVENT DATE: 20230927
